FAERS Safety Report 6738729-2 (Version None)
Quarter: 2010Q2

REPORT INFORMATION
  Report Type: 
  Country: None (occurrence: None)
  Receive Date: 20100524
  Receipt Date: 20100512
  Transmission Date: 20101027
  Serious: No
  Sender: FDA-Public Use
  Company Number: US-B.I. PHARMACEUTICALS,INC./RIDGEFIELD-2010-BP-05376BP

PATIENT
  Age: 43 Year
  Sex: Male

DRUGS (2)
  1. MIRAPEX [Suspect]
     Indication: ESSENTIAL TREMOR
     Route: 048
     Dates: end: 20080601
  2. ADVAIR DISKUS 100/50 [Concomitant]
     Indication: ASTHMA

REACTIONS (4)
  - ABNORMAL BEHAVIOUR [None]
  - COMPULSIVE SHOPPING [None]
  - FATIGUE [None]
  - JUDGEMENT IMPAIRED [None]
